FAERS Safety Report 7502558-2 (Version None)
Quarter: 2011Q2

REPORT INFORMATION
  Report Type: 
  Country: None (occurrence: None)
  Receive Date: 20110517
  Receipt Date: 20110421
  Transmission Date: 20111010
  Serious: Yes (Other)
  Sender: FDA-Public Use
  Company Number: 2026023-2011-0002

PATIENT

DRUGS (3)
  1. STYE EYE RELIEF, CONIUM MACULATION 6X, GRAPHITES 12X, SULPHUR 12X,SIMI [Suspect]
     Indication: PRURITUS
     Dosage: USED 2 OR 3 TIMES,046
     Dates: start: 20110420
  2. STYE EYE RELIEF, CONIUM MACULATION 6X, GRAPHITES 12X, SULPHUR 12X,SIMI [Suspect]
     Indication: OCULAR HYPERAEMIA
     Dosage: USED 2 OR 3 TIMES,046
     Dates: start: 20110420
  3. SAVELLA [Concomitant]

REACTIONS (7)
  - EYE PRURITUS [None]
  - OCULAR HYPERAEMIA [None]
  - EYE PAIN [None]
  - EYE INFECTION [None]
  - EYE DISCHARGE [None]
  - DRUG HYPERSENSITIVITY [None]
  - DRUG INEFFECTIVE [None]
